FAERS Safety Report 6273905-7 (Version None)
Quarter: 2009Q3

REPORT INFORMATION
  Report Type: 
  Country: None (occurrence: None)
  Receive Date: 20090720
  Receipt Date: 20090710
  Transmission Date: 20100115
  Serious: Yes (Life-Threatening)
  Sender: FDA-Public Use
  Company Number: PT-ABBOTT-09P-130-0584651-00

PATIENT
  Sex: Male
  Weight: 87 kg

DRUGS (3)
  1. NIASPAN [Suspect]
     Indication: DYSLIPIDAEMIA
     Dates: start: 20090121, end: 20090419
  2. ASPIRINA GR [Concomitant]
     Indication: PROPHYLAXIS
  3. Q10 [Concomitant]
     Indication: DRUG USE FOR UNKNOWN INDICATION
     Dates: start: 20090323

REACTIONS (4)
  - ANXIETY [None]
  - DYSPNOEA [None]
  - FLUSHING [None]
  - MALAISE [None]
